FAERS Safety Report 13692018 (Version 1)
Quarter: 2017Q2

REPORT INFORMATION
  Report Type: Spontaneous
  Country: US (occurrence: US)
  Receive Date: 20170626
  Receipt Date: 20170626
  Transmission Date: 20170830
  Serious: No
  Sender: FDA-Public Use
  Company Number: US-DSJP-DSU-2016-142464

PATIENT
  Sex: Male
  Weight: 117.91 kg

DRUGS (5)
  1. ATENOLOL. [Concomitant]
     Active Substance: ATENOLOL
     Indication: HYPERTENSION
     Dosage: UNK
     Route: 048
  2. PLAVIX [Concomitant]
     Active Substance: CLOPIDOGREL BISULFATE
     Indication: PRODUCT USED FOR UNKNOWN INDICATION
     Dosage: UNK
  3. LISINOPRIL. [Concomitant]
     Active Substance: LISINOPRIL
     Indication: HYPERTENSION
     Dosage: UNK
  4. WELCHOL [Suspect]
     Active Substance: COLESEVELAM HYDROCHLORIDE
     Indication: BILE ACID MALABSORPTION
     Dosage: 625 MG, QD
     Route: 048
     Dates: start: 201601
  5. BABY ASPIRIN [Concomitant]
     Active Substance: ASPIRIN
     Indication: STENT PLACEMENT
     Dosage: 81 MG, UNK
     Route: 048

REACTIONS (3)
  - Blood urine present [Recovered/Resolved]
  - Off label use [Not Recovered/Not Resolved]
  - Haemorrhage urinary tract [Recovered/Resolved]

NARRATIVE: CASE EVENT DATE: 2016
